FAERS Safety Report 6526600-0 (Version None)
Quarter: 2010Q1

REPORT INFORMATION
  Report Type: 
  Country: None (occurrence: None)
  Receive Date: 20100105
  Receipt Date: 20091223
  Transmission Date: 20100710
  Serious: Yes (Hospitalization)
  Sender: FDA-Public Use
  Company Number: DE-AMGEN-US382485

PATIENT
  Age: 52 Year
  Sex: Female

DRUGS (5)
  1. ENBREL [Suspect]
     Indication: RHEUMATOID ARTHRITIS
     Route: 058
     Dates: start: 20090518
  2. PANTOPRAZOLE [Concomitant]
     Route: 048
  3. BELOC ZOK [Concomitant]
     Route: 048
  4. VOLTAREN [Concomitant]
     Route: 048
  5. GLUCOCORTICOIDS [Concomitant]
     Dosage: 10MG (FREQUENCY UNKNOWN)
     Route: 048

REACTIONS (2)
  - FATIGUE [None]
  - KNEE ARTHROPLASTY [None]
